FAERS Safety Report 18122147 (Version 2)
Quarter: 2020Q3

REPORT INFORMATION
  Report Type: Report from Study
  Country: US (occurrence: US)
  Receive Date: 20200807
  Receipt Date: 20200922
  Transmission Date: 20201103
  Serious: Yes (Hospitalization)
  Sender: FDA-Public Use
  Company Number: NVSC2020US214587

PATIENT
  Sex: Female

DRUGS (1)
  1. ENTRESTO [Suspect]
     Active Substance: SACUBITRIL\VALSARTAN
     Indication: PRODUCT USED FOR UNKNOWN INDICATION
     Dosage: UNK, BID
     Route: 048

REACTIONS (7)
  - Dizziness [Unknown]
  - Renal failure [Unknown]
  - Fatigue [Unknown]
  - Temperature intolerance [Unknown]
  - Asthenia [Unknown]
  - Extra dose administered [Unknown]
  - Hypotension [Unknown]
